FAERS Safety Report 10073464 (Version 1)
Quarter: 2014Q2

REPORT INFORMATION
  Report Type: Spontaneous
  Country: KR (occurrence: KR)
  Receive Date: 20140411
  Receipt Date: 20140411
  Transmission Date: 20141212
  Serious: Yes (Other)
  Sender: FDA-Public Use
  Company Number: KR-WATSON-2014-06863

PATIENT
  Age: 38 Year
  Sex: Female

DRUGS (2)
  1. METRONIDAZOLE [Suspect]
     Indication: INTERVERTEBRAL DISCITIS
     Dosage: 1.5 G, DAILY
     Route: 042
  2. METRONIDAZOLE [Suspect]
     Indication: BACTEROIDES INFECTION
     Dosage: UNKNOWN
     Route: 048

REACTIONS (1)
  - Neuropathy peripheral [Recovering/Resolving]
